FAERS Safety Report 9207575 (Version 5)
Quarter: 2014Q1

REPORT INFORMATION
  Report Type: Report from Study
  Country: NL (occurrence: NL)
  Receive Date: 20130403
  Receipt Date: 20140114
  Transmission Date: 20141002
  Serious: Yes (Hospitalization)
  Sender: FDA-Public Use
  Company Number: NL-ROCHE-1204916

PATIENT
  Age: 60 Year
  Sex: Female

DRUGS (3)
  1. TRASTUZUMAB EMTANSINE [Suspect]
     Indication: HER-2 POSITIVE BREAST CANCER
     Dosage: LAST DOSE PRIOR TO SAE: 19/MAR/2013, LAST DOSE TAKEN: 3MG/KG, CYCLE 7
     Route: 042
     Dates: start: 20121010
  2. TRASTUZUMAB [Suspect]
     Indication: HER-2 POSITIVE BREAST CANCER
     Dosage: REPORTED AS ZIRCONIUM-89 LABELLED TRASTUZUMAB. UNIT DOSE: 37+/- 10% = 36,33 MBQ.
     Route: 042
     Dates: start: 20121005, end: 20121005
  3. TRASTUZUMAB [Suspect]
     Route: 042
     Dates: start: 20121005, end: 20121005

REACTIONS (1)
  - Tumour haemorrhage [Recovered/Resolved]
